FAERS Safety Report 5528300-2 (Version None)
Quarter: 2007Q4

REPORT INFORMATION
  Report Type: 
  Country: None (occurrence: None)
  Receive Date: 20071109
  Receipt Date: 20070226
  Transmission Date: 20080405
  Serious: Yes (Other)
  Sender: FDA-Public Use
  Company Number: PHEH2007US02568

PATIENT
  Age: 52 Year
  Sex: Female
  Weight: 102 kg

DRUGS (10)
  1. ESTRADERM [Suspect]
     Indication: HORMONE REPLACEMENT THERAPY
     Dosage: TRANSDERMAL ; 0.05 MG, TRANSDERMAL
     Route: 062
     Dates: start: 19980101, end: 19980701
  2. ESTRADERM [Suspect]
     Indication: HORMONE REPLACEMENT THERAPY
     Dosage: TRANSDERMAL ; 0.05 MG, TRANSDERMAL
     Route: 062
     Dates: start: 19880101
  3. VIVELLE [Suspect]
     Indication: HORMONE REPLACEMENT THERAPY
     Dosage: 0.05 MG, TRANSDERMAL
     Route: 062
     Dates: start: 19980701
  4. PREMARIN [Suspect]
     Indication: HORMONE REPLACEMENT THERAPY
     Dates: end: 20000101
  5. PREMPRO [Suspect]
     Indication: HORMONE REPLACEMENT THERAPY
     Dates: end: 20000101
  6. ESTRACE [Suspect]
     Indication: HORMONE REPLACEMENT THERAPY
     Dates: end: 20000101
  7. CLIMARA [Suspect]
     Indication: HORMONE REPLACEMENT THERAPY
     Dates: end: 19980101
  8. NORVASC [Concomitant]
  9. DIOVAN [Concomitant]
  10. HYDROCHLOROTHIAZIDE [Concomitant]

REACTIONS (19)
  - BACK PAIN [None]
  - BREAST CANCER [None]
  - BREAST MASS [None]
  - CHEST PAIN [None]
  - DYSPNOEA [None]
  - GOITRE [None]
  - HAEMORRHOIDS [None]
  - HEPATIC CYST [None]
  - HYSTERECTOMY [None]
  - MALIGNANT BREAST LUMP REMOVAL [None]
  - MUSCULOSKELETAL PAIN [None]
  - NECK PAIN [None]
  - OESTROGEN RECEPTOR ASSAY POSITIVE [None]
  - OVARIAN CYST [None]
  - PALPITATIONS [None]
  - PROGESTERONE RECEPTOR ASSAY POSITIVE [None]
  - ROAD TRAFFIC ACCIDENT [None]
  - SPINAL OSTEOARTHRITIS [None]
  - UTERINE LEIOMYOMA [None]
